FAERS Safety Report 5804688-X (Version None)
Quarter: 2008Q3

REPORT INFORMATION
  Report Type: 
  Country: None (occurrence: None)
  Receive Date: 20080709
  Receipt Date: 20080617
  Transmission Date: 20090109
  Serious: Yes (Death)
  Sender: FDA-Public Use
  Company Number: BR-ROCHE-574215

PATIENT
  Sex: Female

DRUGS (24)
  1. MYCOPHENOLATE MOFETIL [Suspect]
     Route: 048
     Dates: start: 20030429, end: 20030710
  2. CYCLOSPORINE [Suspect]
     Route: 048
     Dates: start: 20030429, end: 20030501
  3. CYCLOSPORINE [Suspect]
     Route: 048
     Dates: start: 20030502
  4. CYCLOSPORINE [Suspect]
     Route: 048
     Dates: start: 20030503, end: 20030509
  5. CYCLOSPORINE [Suspect]
     Route: 048
     Dates: start: 20030510
  6. CYCLOSPORINE [Suspect]
     Route: 048
     Dates: start: 20030511
  7. CYCLOSPORINE [Suspect]
     Route: 048
     Dates: start: 20030512
  8. CYCLOSPORINE [Suspect]
     Route: 048
     Dates: start: 20030513, end: 20030525
  9. CYCLOSPORINE [Suspect]
     Route: 048
     Dates: start: 20030526
  10. CYCLOSPORINE [Suspect]
     Route: 048
     Dates: start: 20030527, end: 20030814
  11. CYCLOSPORINE [Suspect]
     Route: 048
     Dates: start: 20030815
  12. PREDNISONE TAB [Suspect]
     Route: 048
     Dates: start: 20030429, end: 20030526
  13. PREDNISONE TAB [Suspect]
     Route: 048
     Dates: start: 20030527, end: 20030623
  14. PREDNISONE TAB [Suspect]
     Route: 048
     Dates: start: 20030624, end: 20030710
  15. PREDNISONE TAB [Suspect]
     Route: 048
     Dates: start: 20030711, end: 20030724
  16. PREDNISONE TAB [Suspect]
     Route: 048
     Dates: start: 20030725
  17. BACTRIM [Concomitant]
     Route: 048
     Dates: start: 20030429, end: 20050417
  18. RANITIDINE HCL [Concomitant]
     Route: 048
     Dates: start: 20030428, end: 20050417
  19. PROPRANOLOL [Concomitant]
     Route: 048
     Dates: start: 20030430, end: 20050417
  20. CHLORTHALIDONE [Concomitant]
     Route: 048
     Dates: start: 20030504, end: 20050417
  21. ACETYLSALICYLIC ACID SRT [Concomitant]
     Route: 048
     Dates: start: 20030522, end: 20050417
  22. CAPTOPRIL [Concomitant]
     Route: 048
     Dates: start: 20030522, end: 20050417
  23. METHYLPREDNISOLONE [Concomitant]
     Dates: start: 20030428, end: 20030428
  24. IBERIN FOLICO [Concomitant]
     Route: 048
     Dates: start: 20030807, end: 20050417

REACTIONS (1)
  - DEATH [None]
